FAERS Safety Report 16850609 (Version 1)
Quarter: 2019Q3

REPORT INFORMATION
  Report Type: Spontaneous
  Country: US (occurrence: US)
  Receive Date: 20190925
  Receipt Date: 20190925
  Transmission Date: 20191005
  Serious: No
  Sender: FDA-Public Use
  Company Number: US-THERAPEUTICSMD-2019TMD02293

PATIENT
  Age: 57 Year
  Sex: Female
  Weight: 61.22 kg

DRUGS (4)
  1. UNSPECIFIED CHOLESTEROL MEDICATION [Concomitant]
     Active Substance: UNSPECIFIED INGREDIENT
  2. IMVEXXY [Suspect]
     Active Substance: ESTRADIOL
     Indication: BLADDER PROLAPSE
  3. IMVEXXY [Suspect]
     Active Substance: ESTRADIOL
     Indication: DYSPAREUNIA
     Dosage: 10 ?G, 1X/DAY BEFORE BED
     Route: 067
     Dates: start: 201906, end: 201907
  4. IMVEXXY [Suspect]
     Active Substance: ESTRADIOL
     Indication: PROPHYLAXIS URINARY TRACT INFECTION
     Dosage: 10 ?G, 3X/WEEK BEFORE BED
     Route: 067
     Dates: start: 201907, end: 201907

REACTIONS (6)
  - Vulvovaginal pruritus [Recovered/Resolved]
  - Headache [Recovered/Resolved]
  - Vulvovaginal burning sensation [Recovered/Resolved]
  - Fungal infection [Recovered/Resolved]
  - Off label use [Recovered/Resolved]
  - Vulvovaginal swelling [Recovered/Resolved]

NARRATIVE: CASE EVENT DATE: 201906
